FAERS Safety Report 6290545-4 (Version None)
Quarter: 2009Q3

REPORT INFORMATION
  Report Type: 
  Country: None (occurrence: None)
  Receive Date: 20090730
  Receipt Date: 20090724
  Transmission Date: 20100115
  Serious: Yes (Death, Hospitalization)
  Sender: FDA-Public Use
  Company Number: IL-ROCHE-610566

PATIENT
  Sex: Female
  Weight: 68 kg

DRUGS (9)
  1. CAPECITABINE [Suspect]
     Indication: BREAST CANCER
     Route: 048
     Dates: start: 20081216, end: 20081224
  2. MEGACE [Concomitant]
     Route: 048
     Dates: start: 20081029, end: 20081228
  3. ALDOSPIRONE [Concomitant]
     Indication: ESSENTIAL HYPERTENSION
     Route: 048
     Dates: start: 19970101, end: 20081229
  4. LAXADIN [Concomitant]
     Indication: CONSTIPATION
     Route: 048
     Dates: start: 20080201, end: 20081223
  5. PRAMIN [Concomitant]
     Indication: NAUSEA
     Route: 048
     Dates: start: 20080214, end: 20081228
  6. OXYCODAN [Concomitant]
     Indication: BONE PAIN
     Dosage: DRUG NAME: OXYCOD - SYROP
     Route: 048
     Dates: start: 20080210, end: 20081228
  7. DIPYRONE [Concomitant]
     Indication: BONE PAIN
     Dosage: DRUG NAME: V-TALGIN
     Route: 048
     Dates: start: 20080210, end: 20081228
  8. ELATROL [Concomitant]
     Route: 048
     Dates: start: 20081111, end: 20081228
  9. DURAGESIC-100 [Concomitant]
     Indication: BONE PAIN
     Route: 062
     Dates: start: 20080306, end: 20081230

REACTIONS (3)
  - DEATH [None]
  - PANCYTOPENIA [None]
  - RECTAL HAEMORRHAGE [None]
